FAERS Safety Report 8518058-7 (Version None)
Quarter: 2012Q3

REPORT INFORMATION
  Report Type: 
  Country: None (occurrence: None)
  Receive Date: 20120718
  Receipt Date: 20110829
  Transmission Date: 20120928
  Serious: No
  Sender: FDA-Public Use
  Company Number: US-BRISTOL-MYERS SQUIBB COMPANY-16013831

PATIENT
  Age: 82 Year
  Sex: Female
  Weight: 88 kg

DRUGS (6)
  1. COUMADIN [Suspect]
     Indication: ATRIAL FIBRILLATION
     Dosage: 1 DOSAGE FORM = 2.5MG PO AND 5.0 PO
     Route: 048
  2. METOPROLOL SUCCINATE [Concomitant]
     Dosage: 2TABLETS/DAY
  3. ZOCOR [Concomitant]
  4. SIMVASTATIN [Concomitant]
  5. FUROSEMIDE [Concomitant]
     Route: 048
  6. BENAZEPRIL HYDROCHLORIDE [Concomitant]

REACTIONS (1)
  - RASH [None]
